FAERS Safety Report 7064231-7 (Version None)
Quarter: 2011Q1

REPORT INFORMATION
  Report Type: 
  Country: None (occurrence: None)
  Receive Date: 20101027
  Receipt Date: 20101013
  Transmission Date: 20110831
  Serious: Yes (Hospitalization)
  Sender: FDA-Public Use
  Company Number: DE-RANBAXY-2010RR-38879

PATIENT
  Sex: Male
  Weight: 140 kg

DRUGS (2)
  1. AMLODIPINE BESYLATE AND VALSARTAN [Suspect]
     Indication: HYPERTENSION
     Dosage: UNK
     Dates: start: 20100804
  2. AMLODIPINE [Suspect]
     Indication: HYPERTENSION
     Dosage: 10 MG, UNK

REACTIONS (3)
  - HAEMOLYTIC ANAEMIA [None]
  - DRUG INTERACTION [None]
  - DRUG ADMINISTRATION ERROR [None]
